FAERS Safety Report 18263310 (Version 1)
Quarter: 2020Q3

REPORT INFORMATION
  Report Type: Spontaneous
  Country: US (occurrence: US)
  Receive Date: 20200914
  Receipt Date: 20200914
  Transmission Date: 20201103
  Serious: No
  Sender: FDA-Public Use
  Company Number: US-RECKITT BENCKISER HEALTHCARE INT LIMITED-RB-85008-2020

PATIENT
  Age: 80 Year
  Sex: Female

DRUGS (2)
  1. MUCINEX D MAXIMUM STRENGTH [Suspect]
     Active Substance: GUAIFENESIN\PSEUDOEPHEDRINE HYDROCHLORIDE
     Indication: PRODUCT USED FOR UNKNOWN INDICATION
     Dosage: 1200 MILLIGRAM, BID
     Route: 065
     Dates: start: 20200324, end: 20200324
  2. MUCINEX D MAXIMUM STRENGTH [Suspect]
     Active Substance: GUAIFENESIN\PSEUDOEPHEDRINE HYDROCHLORIDE
     Dosage: 1200 MILLIGRAM, SINGLE
     Route: 065
     Dates: start: 20200325, end: 20200325

REACTIONS (2)
  - Heart rate increased [Not Recovered/Not Resolved]
  - Insomnia [Not Recovered/Not Resolved]

NARRATIVE: CASE EVENT DATE: 20200324
